FAERS Safety Report 9078916 (Version 1)
Quarter: 2013Q1

REPORT INFORMATION
  Report Type: Report from Study
  Country: GB (occurrence: GB)
  Receive Date: 20130130
  Receipt Date: 20130130
  Transmission Date: 20140127
  Serious: Yes (Hospitalization)
  Sender: FDA-Public Use
  Company Number: GB-JNJFOC-20130113671

PATIENT
  Age: 52 Year
  Sex: Female

DRUGS (5)
  1. STELARA [Suspect]
     Indication: PSORIASIS
     Route: 058
     Dates: start: 20110330
  2. IBUPROFEN [Concomitant]
     Dates: start: 20110218
  3. PARACETAMOL [Concomitant]
     Dates: start: 20110218
  4. LEVOTHYROXINE SODIUM [Concomitant]
     Dates: start: 20080407
  5. METHOTREXATE [Concomitant]
     Dates: start: 20070701

REACTIONS (2)
  - Urinary tract infection [Recovered/Resolved]
  - Gastritis [Recovered/Resolved]
